FAERS Safety Report 7646566-X (Version None)
Quarter: 2011Q3

REPORT INFORMATION
  Report Type: 
  Country: None (occurrence: None)
  Receive Date: 20110801
  Receipt Date: 20110725
  Transmission Date: 20111222
  Serious: Yes (Death, Hospitalization)
  Sender: FDA-Public Use
  Company Number: FR-JNJFOC-20110710586

PATIENT
  Age: 16 Year
  Sex: Male
  Weight: 70 kg

DRUGS (3)
  1. RISPERDAL [Suspect]
     Dosage: 1 MG IN THE MORNING AND 1 MG IN THE EVENING
     Route: 048
     Dates: start: 20100101
  2. KEPPRA [Suspect]
     Indication: EPILEPSY
     Route: 065
  3. RISPERDAL [Suspect]
     Indication: AGGRESSION
     Route: 048
     Dates: start: 20101026

REACTIONS (3)
  - EPILEPSY [None]
  - TREATMENT NONCOMPLIANCE [None]
  - AGGRESSION [None]
